FAERS Safety Report 10504939 (Version 1)
Quarter: 2014Q3

REPORT INFORMATION
  Report Type: Spontaneous
  Country: US (occurrence: None)
  Receive Date: 20140926
  Receipt Date: 20140926
  Transmission Date: 20150326
  Serious: No
  Sender: FDA-Public Use
  Company Number: 1000068821

PATIENT
  Age: 58 Year
  Sex: Female

DRUGS (11)
  1. NORVASC (AMLODIPINE BESILATE) (AMLODIPNE BESILATE) [Concomitant]
  2. LEVOTHYROXINE (LEVOTHYROXINE SODIUM) (LEVOTHYROXIE SODIUM) [Concomitant]
  3. LINZESS [Suspect]
     Active Substance: LINACLOTIDE
     Indication: CONSTIPATION
     Route: 048
     Dates: start: 20140625, end: 201407
  4. LASIX [Concomitant]
     Active Substance: FUROSEMIDE
  5. OXYCONTIN (OXYCODONE HYDROCHLORIDE) (OXYCODONE HYDROCHLORIDE) [Concomitant]
  6. NEXIUM (ESOMEPRAZOLE) (ESOMEPRAZOLE) [Concomitant]
  7. PRAVASTATIN (PRAVASTATIN) (PRAVASTATIN) [Concomitant]
  8. ESTROGEN (ESTRAGEN) (ESTRAGEN) [Concomitant]
  9. KLONOPIN [Concomitant]
     Active Substance: CLONAZEPAM
  10. LEXAPRO (ESCITALOPRAM OXALATE) (ESCITALOPRAM OXALATE) [Concomitant]
  11. NEURONTIN (GABAPENTIN) (GABAPENTIN) [Concomitant]

REACTIONS (4)
  - Diarrhoea [None]
  - Off label use [None]
  - Muscle spasms [None]
  - Faecal incontinence [None]

NARRATIVE: CASE EVENT DATE: 20140625
